FAERS Safety Report 6155932-3 (Version None)
Quarter: 2009Q2

REPORT INFORMATION
  Report Type: 
  Country: None (occurrence: None)
  Receive Date: 20090415
  Receipt Date: 20090406
  Transmission Date: 20091009
  Serious: Yes (Death)
  Sender: FDA-Public Use
  Company Number: KR-ROCHE-625773

PATIENT
  Age: 55 Year
  Sex: Male

DRUGS (1)
  1. ISOTRETINOIN [Suspect]
     Dosage: FOR 5 WEEKS PRIOR TO I-131 THERAPY
     Route: 065

REACTIONS (1)
  - THYROID CANCER [None]
